FAERS Safety Report 21779580 (Version 1)
Quarter: 2022Q4

REPORT INFORMATION
  Report Type: Report from Study
  Country: US (occurrence: US)
  Receive Date: 20221226
  Receipt Date: 20221226
  Transmission Date: 20230113
  Serious: No
  Sender: FDA-Public Use
  Company Number: US-ABBVIE-22K-163-4338834-00

PATIENT
  Age: 37 Year
  Sex: Male

DRUGS (6)
  1. HUMIRA [Suspect]
     Active Substance: ADALIMUMAB
     Indication: Hidradenitis
     Route: 058
     Dates: start: 20211026
  2. HUMIRA [Suspect]
     Active Substance: ADALIMUMAB
     Dosage: TIME INTERVAL: 1 TOTAL: DAY 1
     Route: 058
     Dates: start: 20211026, end: 20211026
  3. HUMIRA [Suspect]
     Active Substance: ADALIMUMAB
     Dosage: TIME INTERVAL: 1 TOTAL: T WEEK LATER
     Route: 058
     Dates: start: 20211102, end: 20211102
  4. HUMIRA [Suspect]
     Active Substance: ADALIMUMAB
     Route: 058
     Dates: start: 20211116, end: 202204
  5. HUMIRA [Suspect]
     Active Substance: ADALIMUMAB
     Route: 058
  6. DOXYCYCLINE [Concomitant]
     Active Substance: DOXYCYCLINE
     Indication: Product used for unknown indication

REACTIONS (13)
  - Respiratory tract congestion [Recovering/Resolving]
  - Skin disorder [Unknown]
  - COVID-19 [Unknown]
  - Pain [Unknown]
  - Rash [Recovered/Resolved]
  - Hidradenitis [Recovering/Resolving]
  - Condition aggravated [Unknown]
  - Pyrexia [Recovered/Resolved]
  - Pruritus [Unknown]
  - Self-consciousness [Unknown]
  - Loss of personal independence in daily activities [Not Recovered/Not Resolved]
  - Unevaluable event [Unknown]
  - Pain of skin [Unknown]

NARRATIVE: CASE EVENT DATE: 20220301
